FAERS Safety Report 14585077 (Version 8)
Quarter: 2018Q2

REPORT INFORMATION
  Report Type: Spontaneous
  Country: US (occurrence: US)
  Receive Date: 20180301
  Receipt Date: 20180502
  Transmission Date: 20180711
  Serious: Yes (Hospitalization, Other)
  Sender: FDA-Public Use
  Company Number: US-UNITED THERAPEUTICS-UNT-2018-001678

PATIENT
  Age: 69 Year
  Sex: Female
  Weight: 74.38 kg

DRUGS (4)
  1. TYVASO [Suspect]
     Active Substance: TREPROSTINIL
     Dosage: 42 ?G, QID
  2. TYVASO [Suspect]
     Active Substance: TREPROSTINIL
     Indication: PULMONARY ARTERIAL HYPERTENSION
     Dosage: 18 - 54 MICROGRAMS, QID
     Dates: start: 20180131
  3. TYVASO [Suspect]
     Active Substance: TREPROSTINIL
     Indication: PULMONARY HYPERTENSION
     Dosage: UNK
  4. TYVASO [Suspect]
     Active Substance: TREPROSTINIL
     Dosage: UNK

REACTIONS (16)
  - Diarrhoea [Unknown]
  - Cough [Not Recovered/Not Resolved]
  - Visual impairment [Unknown]
  - Glossitis [Unknown]
  - Oxygen consumption decreased [Unknown]
  - Blood potassium increased [Not Recovered/Not Resolved]
  - Back pain [Not Recovered/Not Resolved]
  - Peripheral swelling [Unknown]
  - Headache [Recovering/Resolving]
  - Dizziness [Unknown]
  - Productive cough [Not Recovered/Not Resolved]
  - Gingival disorder [Unknown]
  - Chest pain [Not Recovered/Not Resolved]
  - Blood glucose increased [Unknown]
  - Dyspnoea [Not Recovered/Not Resolved]
  - Swelling [Unknown]

NARRATIVE: CASE EVENT DATE: 201802
